FAERS Safety Report 22006763 (Version 1)
Quarter: 2023Q1

REPORT INFORMATION
  Report Type: Other
  Country: None (occurrence: US)
  Receive Date: 20230217
  Receipt Date: 20230217
  Transmission Date: 20230417
  Serious: Yes (Hospitalization, Other)
  Sender: FDA-Public Use
  Company Number: US-Spectra Medical Devices, LLC-2138099

PATIENT
  Age: 62 Year
  Sex: Male

DRUGS (8)
  1. SODIUM CHLORIDE [Suspect]
     Active Substance: SODIUM CHLORIDE
     Indication: Product used for unknown indication
     Route: 065
  2. PROPOFOL [Concomitant]
     Active Substance: PROPOFOL
     Route: 065
  3. SEVOFLURANE [Concomitant]
     Active Substance: SEVOFLURANE
     Route: 065
  4. DEXTROSE [Concomitant]
     Active Substance: DEXTROSE
     Route: 065
  5. INSULIN NOS [Concomitant]
     Active Substance: INSULIN NOS
     Route: 065
  6. CALCIUM CHLORIDE [Concomitant]
     Active Substance: CALCIUM CHLORIDE
     Route: 065
  7. SODIUM BICARBONATE [Concomitant]
     Active Substance: SODIUM BICARBONATE
     Route: 065
  8. ALBUMIN HUMAN [Concomitant]
     Active Substance: ALBUMIN HUMAN
     Route: 065

REACTIONS (1)
  - Metabolic acidosis [Recovering/Resolving]
